FAERS Safety Report 7519100-2 (Version None)
Quarter: 2011Q2

REPORT INFORMATION
  Report Type: 
  Country: None (occurrence: None)
  Receive Date: 20110602
  Receipt Date: 20110518
  Transmission Date: 20111010
  Serious: Yes (Hospitalization, Other)
  Sender: FDA-Public Use
  Company Number: PHHY2011DE43607

PATIENT
  Age: 69 Year
  Sex: Female

DRUGS (8)
  1. OVASTAT [Concomitant]
     Dosage: 750MG/DAY
  2. CYCLOPHOSPHAMIDE [Concomitant]
     Dosage: 50 MG TWICE PER WEEK
  3. LORAZEPAM [Concomitant]
     Dosage: 1.25 MG, UNK
  4. ZOLEDRONIC ACID [Suspect]
     Indication: OSTEOPOROSIS
     Dosage: 5 MG, UNK
     Route: 042
     Dates: start: 20110418
  5. MIRTAZAPINE [Concomitant]
     Dosage: 12.5 MG, UNK
  6. METOPROLOL SUCCINATE [Concomitant]
     Dosage: 23.75 MG, UNK
  7. RAMIPRIL [Concomitant]
     Dosage: 1.25 MG, UNK
  8. SERTRALINE HYDROCHLORIDE [Concomitant]
     Dosage: 100 MG, UNK

REACTIONS (12)
  - DECREASED APPETITE [None]
  - CONSTIPATION [None]
  - WHITE BLOOD CELL COUNT DECREASED [None]
  - FLUSHING [None]
  - DIARRHOEA [None]
  - HEART RATE INCREASED [None]
  - ATRIAL FIBRILLATION [None]
  - PYREXIA [None]
  - HYPERTENSION [None]
  - NAUSEA [None]
  - C-REACTIVE PROTEIN INCREASED [None]
  - VOMITING [None]
